FAERS Safety Report 8959475 (Version 2)
Quarter: 2013Q2

REPORT INFORMATION
  Report Type: Spontaneous
  Country: US (occurrence: US)
  Receive Date: 20121212
  Receipt Date: 20130424
  Transmission Date: 20140414
  Serious: No
  Sender: FDA-Public Use
  Company Number: US-BAYER-2012-106162

PATIENT
  Age: 18 Year
  Sex: Female

DRUGS (3)
  1. BEYAZ [Suspect]
     Indication: CONTRACEPTION
     Dosage: UNK
     Route: 048
     Dates: start: 201209
  2. BEYAZ [Suspect]
     Indication: DYSMENORRHOEA
  3. BEYAZ [Suspect]
     Indication: MENSTRUAL DISORDER

REACTIONS (8)
  - Chest pain [None]
  - Nausea [None]
  - Vomiting [None]
  - Drug dose omission [None]
  - Withdrawal bleed [Not Recovered/Not Resolved]
  - Dysmenorrhoea [Not Recovered/Not Resolved]
  - Emotional disorder [Not Recovered/Not Resolved]
  - Fatigue [Not Recovered/Not Resolved]
